FAERS Safety Report 6737617-5 (Version None)
Quarter: 2010Q2

REPORT INFORMATION
  Report Type: 
  Country: None (occurrence: None)
  Receive Date: 20100519
  Receipt Date: 20100510
  Transmission Date: 20101027
  Serious: No
  Sender: FDA-Public Use
  Company Number: B0651883A

PATIENT
  Age: 18 Year
  Sex: Male

DRUGS (4)
  1. HYDROCORTISONE [Suspect]
     Indication: ADRENAL INSUFFICIENCY
     Dosage: 5 MG TWICE PER DAY
  2. DESMOPRESSIN ACETATE [Concomitant]
  3. LEVOTHYROXINE SODIUM [Concomitant]
  4. FLUID THERAPY [Concomitant]

REACTIONS (2)
  - DRUG INTERACTION [None]
  - HYPERNATRAEMIA [None]
